FAERS Safety Report 16990671 (Version 1)
Quarter: 2019Q4

REPORT INFORMATION
  Report Type: Spontaneous
  Country: ID (occurrence: ID)
  Receive Date: 20191104
  Receipt Date: 20191104
  Transmission Date: 20200122
  Serious: Yes (Hospitalization, Other)
  Sender: FDA-Public Use
  Company Number: ID-ASTRAZENECA-2019SF56084

PATIENT
  Age: 54 Year
  Sex: Male

DRUGS (2)
  1. IRESSA [Suspect]
     Active Substance: GEFITINIB
     Dosage: UNKNOWN
     Route: 048
     Dates: start: 20161020
  2. TAGRISSO [Suspect]
     Active Substance: OSIMERTINIB
     Dosage: UNKNOWN
     Route: 048
     Dates: start: 20171004

REACTIONS (15)
  - Malignant neoplasm progression [Recovering/Resolving]
  - Bone erosion [Unknown]
  - EGFR gene mutation [Unknown]
  - Dyspnoea [Unknown]
  - Superior vena cava syndrome [Recovering/Resolving]
  - Condition aggravated [Unknown]
  - Chest wall tumour [Unknown]
  - Pleural effusion [Unknown]
  - Sternal injury [Unknown]
  - Hepatic cyst [Unknown]
  - Oedema peripheral [Unknown]
  - Abdominal discomfort [Unknown]
  - Lymphadenopathy [Unknown]
  - Soft tissue mass [Unknown]
  - Neoplasm progression [Unknown]
